FAERS Safety Report 4900596-7 (Version None)
Quarter: 2006Q1

REPORT INFORMATION
  Report Type: 
  Country: None (occurrence: None)
  Receive Date: 20060201
  Receipt Date: 20060120
  Transmission Date: 20060701
  Serious: Yes (Hospitalization)
  Sender: FDA-Public Use
  Company Number: KII-2006-0020905

PATIENT
  Age: 29 Year
  Sex: Male

DRUGS (3)
  1. MORPHINE SULFATE [Suspect]
     Dosage: ORAL
     Route: 048
  2. TIZANIDINE (TIANIDINE) [Suspect]
     Dosage: ORAL
     Route: 048
  3. BENZODIAZEPINE DERIVATES [Suspect]
     Dosage: ORAL
     Route: 048

REACTIONS (3)
  - DELUSION [None]
  - INFECTION [None]
  - PYREXIA [None]
